FAERS Safety Report 14730250 (Version 3)
Quarter: 2018Q3

REPORT INFORMATION
  Report Type: Spontaneous
  Country: IT (occurrence: IT)
  Receive Date: 20180406
  Receipt Date: 20180709
  Transmission Date: 20181010
  Serious: Yes (Other)
  Sender: FDA-Public Use
  Company Number: IT-TEVA-2018-IT-876752

PATIENT
  Age: 43 Year
  Sex: Male

DRUGS (7)
  1. ZYPREXA [Suspect]
     Active Substance: OLANZAPINE
     Route: 048
  2. CARBOLITHIUM [Suspect]
     Active Substance: LITHIUM CARBONATE
     Route: 048
  3. CLOTIAPINE [Suspect]
     Active Substance: CLOTHIAPINE
     Indication: DRUG ABUSE
     Route: 048
     Dates: start: 20171113, end: 20171113
  4. STILNOX [Concomitant]
     Active Substance: ZOLPIDEM TARTRATE
     Route: 048
  5. VALDORM [Concomitant]
     Route: 048
  6. LORAZEPAM. [Concomitant]
     Active Substance: LORAZEPAM
     Route: 048
  7. BRINTELLIX [Concomitant]
     Active Substance: VORTIOXETINE HYDROBROMIDE
     Route: 048

REACTIONS (3)
  - Intentional self-injury [Recovered/Resolved]
  - Sinus tachycardia [Recovered/Resolved]
  - Electrocardiogram QT prolonged [Recovered/Resolved]

NARRATIVE: CASE EVENT DATE: 20171113
